FAERS Safety Report 18656309 (Version 7)
Quarter: 2021Q2

REPORT INFORMATION
  Report Type: Spontaneous
  Country: US (occurrence: US)
  Receive Date: 20201223
  Receipt Date: 20210625
  Transmission Date: 20210717
  Serious: Yes (Hospitalization, Congenital Anomaly, Other)
  Sender: FDA-Public Use
  Company Number: NVSC2020US339960

PATIENT
  Sex: Male

DRUGS (2)
  1. ZOFRAN ODT [Suspect]
     Active Substance: ONDANSETRON HYDROCHLORIDE
     Indication: FOETAL EXPOSURE DURING PREGNANCY
     Route: 064
  2. ZOFRAN [Suspect]
     Active Substance: ONDANSETRON HYDROCHLORIDE
     Indication: FOETAL EXPOSURE DURING PREGNANCY
     Route: 064

REACTIONS (68)
  - Autism spectrum disorder [Unknown]
  - Foetal exposure during pregnancy [Unknown]
  - Rhinorrhoea [Unknown]
  - Chest pain [Unknown]
  - QRS axis abnormal [Unknown]
  - Back pain [Unknown]
  - Heart disease congenital [Unknown]
  - Lower respiratory tract infection [Unknown]
  - Cellulitis [Unknown]
  - Vomiting [Unknown]
  - Gastroenteritis [Unknown]
  - Asthma [Unknown]
  - Right ventricular hypertrophy [Unknown]
  - Upper respiratory tract infection [Unknown]
  - Joint injury [Unknown]
  - Aortic valve incompetence [Unknown]
  - Obsessive-compulsive disorder [Unknown]
  - Abdominal discomfort [Unknown]
  - Nausea [Unknown]
  - Bipolar disorder [Unknown]
  - Sinusitis bacterial [Unknown]
  - Injury [Unknown]
  - Otitis media acute [Unknown]
  - Pharyngitis [Unknown]
  - Hypercholesterolaemia [Unknown]
  - Glucose tolerance impaired [Unknown]
  - Viral infection [Unknown]
  - Palpitations [Unknown]
  - Ear infection [Unknown]
  - Sleep apnoea syndrome [Unknown]
  - Bicuspid aortic valve [Unknown]
  - Psychiatric decompensation [Unknown]
  - Mental disorder [Unknown]
  - Abdominal pain [Unknown]
  - Concussion [Unknown]
  - Cardiac murmur [Unknown]
  - Hyperlipidaemia [Unknown]
  - Obesity [Unknown]
  - Blood pressure systolic increased [Unknown]
  - Aortic dilatation [Unknown]
  - Dizziness [Unknown]
  - Pharyngeal erythema [Unknown]
  - Fibrinous bronchitis [Unknown]
  - Left ventricle outflow tract obstruction [Unknown]
  - Cough [Unknown]
  - Pyrexia [Unknown]
  - Headache [Unknown]
  - Epistaxis [Unknown]
  - Pharyngitis streptococcal [Unknown]
  - Depression [Unknown]
  - Neck injury [Unknown]
  - Congenital aortic stenosis [Unknown]
  - Shone complex [Unknown]
  - Diarrhoea [Unknown]
  - Dyslipidaemia [Unknown]
  - Bronchitis [Unknown]
  - Oropharyngeal pain [Unknown]
  - Pain in extremity [Unknown]
  - Attention deficit hyperactivity disorder [Unknown]
  - Acute sinusitis [Unknown]
  - Mitral valve incompetence [Unknown]
  - Bronchospasm [Unknown]
  - Illness [Unknown]
  - Fatigue [Unknown]
  - Left ventricular hypertrophy [Unknown]
  - Abnormal behaviour [Unknown]
  - Foreign body in ear [Unknown]
  - Rash [Unknown]
